FAERS Safety Report 14345689 (Version 1)
Quarter: 2018Q1

REPORT INFORMATION
  Report Type: Spontaneous
  Country: US (occurrence: US)
  Receive Date: 20180103
  Receipt Date: 20180103
  Transmission Date: 20180509
  Serious: No
  Sender: FDA-Public Use
  Company Number: US-TARO-2017TAR00208

PATIENT
  Age: 9 Year
  Sex: Male
  Weight: 28.12 kg

DRUGS (1)
  1. HYDROCORTISONE CREAM USP 2.5% [Suspect]
     Active Substance: HYDROCORTISONE
     Indication: ECZEMA
     Dosage: UNK, 1X/DAY
     Route: 061
     Dates: start: 20170323, end: 20170329

REACTIONS (4)
  - Pruritus [Recovering/Resolving]
  - Eczema [Recovering/Resolving]
  - Feeling hot [Recovering/Resolving]
  - Rash erythematous [Recovering/Resolving]

NARRATIVE: CASE EVENT DATE: 201703
